FAERS Safety Report 7911911-4 (Version None)
Quarter: 2011Q4

REPORT INFORMATION
  Report Type: 
  Country: None (occurrence: None)
  Receive Date: 20111114
  Receipt Date: 20111031
  Transmission Date: 20120403
  Serious: Yes (Other)
  Sender: FDA-Public Use
  Company Number: IN-ROCHE-1010050

PATIENT
  Age: 61 Year
  Sex: Male

DRUGS (8)
  1. AMILORIDE HYDROCHLORIDE [Concomitant]
  2. CEFOTAXIME [Concomitant]
  3. AMLODIPINE [Concomitant]
  4. ATENOLOL [Concomitant]
  5. METOLAZONE [Suspect]
     Indication: RENAL FAILURE ACUTE
  6. ASPIRIN [Concomitant]
  7. TORSEMIDE [Suspect]
     Indication: RENAL FAILURE ACUTE
  8. FUROSEMIDE [Suspect]
     Indication: RENAL FAILURE ACUTE

REACTIONS (1)
  - RENAL FAILURE ACUTE [None]
